FAERS Safety Report 5147782-1 (Version None)
Quarter: 2006Q4

REPORT INFORMATION
  Report Type: 
  Country: None (occurrence: None)
  Receive Date: 20061110
  Receipt Date: 20061031
  Transmission Date: 20070319
  Serious: Yes (Hospitalization, Other)
  Sender: FDA-Public Use
  Company Number: FR-JNJFOC-20060903390

PATIENT
  Age: 32 Year
  Sex: Male

DRUGS (2)
  1. REMICADE [Suspect]
     Dosage: 2ND INFUSION
     Route: 042
  2. REMICADE [Suspect]
     Indication: PSORIATIC ARTHROPATHY
     Dosage: 1ST INFUSION
     Route: 042

REACTIONS (6)
  - ASTHENIA [None]
  - C-REACTIVE PROTEIN INCREASED [None]
  - JOINT STIFFNESS [None]
  - MUSCULOSKELETAL PAIN [None]
  - PYREXIA [None]
  - TYPE IV HYPERSENSITIVITY REACTION [None]
